FAERS Safety Report 11269936 (Version 1)
Quarter: 2015Q3

REPORT INFORMATION
  Report Type: Spontaneous
  Country: CH (occurrence: CH)
  Receive Date: 20150714
  Receipt Date: 20150714
  Transmission Date: 20151125
  Serious: Yes (Disabling)
  Sender: FDA-Public Use
  Company Number: CH-CELGENE-CHE-2015071671

PATIENT
  Age: 66 Year
  Sex: Female

DRUGS (11)
  1. TOREM [Concomitant]
     Active Substance: TORSEMIDE
     Indication: ESSENTIAL HYPERTENSION
     Dosage: 100 MILLIGRAM
     Route: 048
  2. ASPIRIN. [Concomitant]
     Active Substance: ASPIRIN
     Indication: CARDIOVASCULAR EVENT PROPHYLAXIS
     Dosage: 68.5714 MILLIGRAM
     Route: 048
  3. CITALOPRAM [Concomitant]
     Active Substance: CITALOPRAM HYDROBROMIDE
     Indication: ESSENTIAL HYPERTENSION
     Dosage: 20 MILLIGRAM
     Route: 048
  4. MORPHINE [Concomitant]
     Active Substance: MORPHINE
     Indication: PAIN
     Dosage: 20 MILLIGRAM
     Route: 048
  5. DAFALGAN [Concomitant]
     Active Substance: ACETAMINOPHEN
     Indication: PAIN
     Dosage: 300 MILLIGRAM
     Route: 048
  6. REVLIMID [Suspect]
     Active Substance: LENALIDOMIDE
     Route: 048
     Dates: start: 201301, end: 201303
  7. BACTRIM [Concomitant]
     Active Substance: SULFAMETHOXAZOLE\TRIMETHOPRIM
     Indication: INFECTION
     Dosage: 1000 MILLIGRAM
     Route: 048
  8. LYRICA [Concomitant]
     Active Substance: PREGABALIN
     Indication: PAIN
     Dosage: 240 MILLIGRAM
     Route: 048
  9. FORTECORTIN [Concomitant]
     Active Substance: DEXAMETHASONE
     Indication: PROPHYLAXIS OF NAUSEA AND VOMITING
     Route: 048
     Dates: start: 20111129, end: 20120703
  10. CIPROXINE [Concomitant]
     Active Substance: CIPROFLOXACIN
     Indication: INFECTION
     Route: 048
  11. REVLIMID [Suspect]
     Active Substance: LENALIDOMIDE
     Indication: PLASMA CELL MYELOMA
     Route: 048
     Dates: start: 20111129, end: 20120703

REACTIONS (1)
  - Congestive cardiomyopathy [Not Recovered/Not Resolved]

NARRATIVE: CASE EVENT DATE: 20121016
